APPROVED DRUG PRODUCT: MIDODRINE HYDROCHLORIDE
Active Ingredient: MIDODRINE HYDROCHLORIDE
Strength: 2.5MG
Dosage Form/Route: TABLET;ORAL
Application: A212774 | Product #001 | TE Code: AB
Applicant: AUROBINDO PHARMA LTD
Approved: Aug 10, 2020 | RLD: No | RS: No | Type: RX